FAERS Safety Report 20638010 (Version 4)
Quarter: 2022Q2

REPORT INFORMATION
  Report Type: Report from Study
  Country: AT (occurrence: AT)
  Receive Date: 20220325
  Receipt Date: 20220426
  Transmission Date: 20220721
  Serious: Yes (Hospitalization, Other)
  Sender: FDA-Public Use
  Company Number: AT-ROCHE-3016595

PATIENT
  Age: 47 Year
  Sex: Female

DRUGS (46)
  1. TRASTUZUMAB [Suspect]
     Active Substance: TRASTUZUMAB
     Indication: Breast cancer
     Dosage: 8 MILLIGRAM/KILOGRAM, Q3W
     Route: 041
     Dates: start: 20180924, end: 20180924
  2. TRASTUZUMAB [Suspect]
     Active Substance: TRASTUZUMAB
     Indication: HER2 positive breast cancer
     Dosage: 6 MILLIGRAM/KILOGRAM, Q3W
     Route: 041
     Dates: start: 20181015, end: 20200910
  3. TRASTUZUMAB [Suspect]
     Active Substance: TRASTUZUMAB
     Dosage: 8 MILLIGRAM/KILOGRAM, Q3W,MOST RECENT DOSE PRIOR TO THE EVENT:03/NOV/2021,INFUSION, SOLUTION
     Route: 041
     Dates: start: 20210512, end: 20211103
  4. DOCETAXEL [Suspect]
     Active Substance: DOCETAXEL
     Indication: Breast cancer
     Dosage: 75 MILLIGRAM/SQ. METER, Q3W,MOST RECENT DOSE ON 23/JAN/2019
     Route: 042
     Dates: start: 20180924, end: 20190123
  5. DOCETAXEL [Suspect]
     Active Substance: DOCETAXEL
     Indication: HER2 positive breast cancer
  6. ADO-TRASTUZUMAB EMTANSINE [Suspect]
     Active Substance: ADO-TRASTUZUMAB EMTANSINE
     Indication: Breast cancer
     Dosage: 3.6 MILLIGRAM/KILOGRAM, LAST DRUG ADMINISTRATION PRIOR TO AE- 21/APR/2021
     Route: 042
     Dates: start: 20201001
  7. ADO-TRASTUZUMAB EMTANSINE [Suspect]
     Active Substance: ADO-TRASTUZUMAB EMTANSINE
     Indication: HER2 positive breast cancer
  8. XGEVA [Suspect]
     Active Substance: DENOSUMAB
     Indication: Breast cancer
     Dosage: ONGOING = CHECKED
     Route: 065
     Dates: start: 20180918
  9. XGEVA [Suspect]
     Active Substance: DENOSUMAB
     Dosage: 120 MILLIGRAM, Q4W - EVERY 4 WEEKS MOST RECENT DOSE PRIOR TO THE EVENT: 18/SEP/2018
     Route: 058
     Dates: start: 20180918
  10. XGEVA [Suspect]
     Active Substance: DENOSUMAB
     Dosage: 120 MILLIGRAM, MONTHLY
     Route: 013
     Dates: start: 20180918
  11. DENOSUMAB [Suspect]
     Active Substance: DENOSUMAB
     Indication: Breast cancer
     Dosage: UNK ONGOING = CHECKED
     Route: 065
     Dates: start: 20180918
  12. DENOSUMAB [Suspect]
     Active Substance: DENOSUMAB
     Indication: HER2 positive breast cancer
     Dosage: 120 MILLIGRAM FREQUENCY: Q4W - EVERY 4 WEEKS MOST RECENT DOSE PRIOR TO THE EVENT: 18/SEP/2018
     Route: 058
     Dates: start: 20180918
  13. TAXOTERE [Suspect]
     Active Substance: DOCETAXEL
     Indication: Breast cancer
     Dosage: 75 MILLIGRAM/SQ. METER, Q3W
     Route: 042
     Dates: start: 20180924, end: 20190123
  14. PERTUZUMAB [Suspect]
     Active Substance: PERTUZUMAB
     Indication: Breast cancer
     Dosage: 840 MILLIGRAM, Q3W
     Route: 042
     Dates: start: 20180924, end: 20180924
  15. PERTUZUMAB [Suspect]
     Active Substance: PERTUZUMAB
     Indication: HER2 positive breast cancer
     Dosage: 420 MILLIGRAM, Q3W,MOST RECENT DOSE PRIOR TO THE EVENT: 10/SEP/2020
     Route: 042
     Dates: start: 20181015
  16. CAPECITABINE [Suspect]
     Active Substance: CAPECITABINE
     Indication: Breast cancer
     Dosage: 500 MILLIGRAM (FREQUENCY: OTHER MOST RECENT DOSE PRIOR TO THE EVENT: 20210515)
     Route: 048
     Dates: start: 20210512, end: 20210513
  17. CAPECITABINE [Suspect]
     Active Substance: CAPECITABINE
     Indication: HER2 positive breast cancer
     Dosage: 500 MILLIGRAM,MOST RECENT DOSE PRIOR TO THE EVENT: 24/NOV/2021
     Route: 048
     Dates: start: 20210515
  18. DEXAMETHASONE [Concomitant]
     Active Substance: DEXAMETHASONE
     Dosage: 8 MILLIGRAM,OTHER EVERY 3 WEEKS BEFORE EACH CHEMOTHERAPY
     Route: 042
     Dates: start: 20211213
  19. Pram [Concomitant]
     Dosage: UNK
  20. Pram [Concomitant]
     Dosage: 40 MILLIGRAM, QD
     Route: 048
  21. ASCORBIC ACID;CALCIUM PHOSPHATE;CITRIC ACID;COLECALCIFEROL [Concomitant]
     Dosage: ONGOING = CHECKED
     Dates: start: 20190827
  22. ASCORBIC ACID;CALCIUM PHOSPHATE;CITRIC ACID;COLECALCIFEROL [Concomitant]
     Dosage: 500 MILLIGRAM, BID
     Route: 048
     Dates: start: 20190827
  23. KEPPRA [Concomitant]
     Active Substance: LEVETIRACETAM
     Indication: Epilepsy
     Dosage: UNK (ONGOING = CHECKED)
     Dates: start: 20210513
  24. KEPPRA [Concomitant]
     Active Substance: LEVETIRACETAM
     Dosage: 1000 MILLIGRAM, BID
     Route: 048
     Dates: start: 20210513
  25. ZOFRAN [Concomitant]
     Active Substance: ONDANSETRON HYDROCHLORIDE
     Dosage: 8 MILLIGRAM,EVERY 3 WEEKS BEFORE EACH CHEMOTHERAPY 21/APR/2021
     Route: 042
     Dates: start: 20211213
  26. ZOFRAN [Concomitant]
     Active Substance: ONDANSETRON HYDROCHLORIDE
     Dosage: UNK,1.00 AMPULE
     Route: 042
     Dates: start: 20180924, end: 20210421
  27. LOVENOX [Concomitant]
     Active Substance: ENOXAPARIN SODIUM
     Dosage: 20 MILLIGRAM, QD
     Route: 058
     Dates: start: 20211124
  28. DRONABINOL [Concomitant]
     Active Substance: DRONABINOL
     Dosage: ONGOING = CHECKED
     Dates: start: 20210304
  29. DRONABINOL [Concomitant]
     Active Substance: DRONABINOL
     Dosage: 2.5 PERCENT, BID
     Route: 048
     Dates: start: 20210304
  30. DRONABINOL [Concomitant]
     Active Substance: DRONABINOL
     Dosage: 2 GTT DROPS, Q8H
     Route: 048
     Dates: start: 20190123
  31. ALPRAZOLAM [Concomitant]
     Active Substance: ALPRAZOLAM
     Dosage: 0.5 MILLIGRAM, PRN(PRN (AS NEEDED) )
     Route: 048
     Dates: start: 20181114
  32. TAMOXIFEN [Concomitant]
     Active Substance: TAMOXIFEN
     Dosage: 200 MILLIGRAM, QD
     Route: 048
     Dates: start: 20200325, end: 20200930
  33. MODERNA COVID-19 VACCINE [Concomitant]
     Active Substance: ELASOMERAN
     Dosage: 0.5 MILLILITER
     Route: 030
     Dates: start: 20210315
  34. MODERNA COVID-19 VACCINE [Concomitant]
     Active Substance: ELASOMERAN
     Dosage: 0.5 MILLILITER
     Route: 030
     Dates: start: 20210412
  35. METAMIZOLE [Concomitant]
     Active Substance: METAMIZOLE
     Dosage: 20 GTT DROPS, PRN (AS NEEDED)
     Route: 048
     Dates: start: 2018, end: 20210309
  36. TRAMADOL [Concomitant]
     Active Substance: TRAMADOL
     Dosage: 100 MILLIGRAM, BID
     Route: 048
     Dates: start: 2018, end: 20190504
  37. Temesta [Concomitant]
     Indication: Epilepsy
     Dosage: 2 MILLIGRAM
     Route: 042
     Dates: start: 20210513
  38. EMEND [Concomitant]
     Active Substance: APREPITANT
     Dosage: 80 MILLIGRAM,OTHER 4 DAYS CONSECUTIVELY EVERY 4 WEEKS
     Route: 048
     Dates: start: 20181114, end: 20190125
  39. TRAMADOL [Concomitant]
     Active Substance: TRAMADOL
     Dosage: 50 MILLIGRAM, PRN(AS NEEDED)
     Route: 048
     Dates: start: 2018, end: 20190308
  40. TUCATINIB [Concomitant]
     Active Substance: TUCATINIB
     Indication: HER2 positive breast cancer
     Dosage: 150 MILLIGRAM, QID
     Route: 048
     Dates: start: 20210512, end: 20210513
  41. TUCATINIB [Concomitant]
     Active Substance: TUCATINIB
     Dosage: 150 MILLIGRAM, QID
     Route: 048
     Dates: start: 20210515, end: 20211124
  42. ERYTHROPOIETIN [Concomitant]
     Active Substance: ERYTHROPOIETIN
     Dosage: 30000 INTERNATIONAL UNIT, QW
     Route: 058
     Dates: start: 20181016, end: 20190308
  43. ZOFRAN [Concomitant]
     Active Substance: ONDANSETRON HYDROCHLORIDE
     Dosage: 8 MILLIGRAM,EVERY 3 WEEKS FOR 2 DAYS
     Route: 048
     Dates: start: 20220124
  44. ZOFRAN [Concomitant]
     Active Substance: ONDANSETRON HYDROCHLORIDE
     Dosage: 8 MILLIGRAM, PRN(AS NECESSARY)
     Route: 048
     Dates: start: 20181016, end: 20190308
  45. DEXAMETHASONE [Concomitant]
     Active Substance: DEXAMETHASONE
     Dosage: 8 MILLIGRAM,OTHER EVERY 3 WEEKS FOR TWO DAYS
     Route: 048
     Dates: start: 20220124
  46. DEXAMETHASONE [Concomitant]
     Active Substance: DEXAMETHASONE
     Dosage: 8 MILLIGRAM
     Route: 048
     Dates: start: 20181016, end: 20181017

REACTIONS (4)
  - Syncope [Recovered/Resolved]
  - Soft tissue infection [Recovered/Resolved]
  - Hypokalaemia [Recovered/Resolved]
  - Diarrhoea [Recovered/Resolved]

NARRATIVE: CASE EVENT DATE: 20211123
